FAERS Safety Report 15946959 (Version 7)
Quarter: 2020Q1

REPORT INFORMATION
  Report Type: Report from Study
  Country: US (occurrence: US)
  Receive Date: 20190212
  Receipt Date: 20200212
  Transmission Date: 20200409
  Serious: Yes (Hospitalization, Other)
  Sender: FDA-Public Use
  Company Number: US-BRISTOL-MYERS SQUIBB COMPANY-BMS-2019-011424

PATIENT
  Age: 43 Year
  Sex: Female

DRUGS (3)
  1. HYDROXYCHLOROQUINE PHOSPHATE [Concomitant]
     Active Substance: HYDROXYCHLOROQUINE DIPHOSPHATE
     Indication: PRODUCT USED FOR UNKNOWN INDICATION
     Dosage: UNK
     Route: 065
     Dates: start: 202001
  2. ABATACEPT [Suspect]
     Active Substance: ABATACEPT
     Indication: PRODUCT USED FOR UNKNOWN INDICATION
     Dosage: UNK
     Route: 065
  3. HUMIRA [Suspect]
     Active Substance: ADALIMUMAB
     Indication: RHEUMATOID ARTHRITIS
     Dosage: 40 MG, 1 IN 2 WEEK
     Route: 058

REACTIONS (20)
  - Swelling [Unknown]
  - Injection site bruising [Unknown]
  - Therapeutic response shortened [Unknown]
  - Sjogren^s syndrome [Unknown]
  - Pain [Unknown]
  - Weight bearing difficulty [Unknown]
  - Injection site pain [Unknown]
  - Migraine [Unknown]
  - Musculoskeletal stiffness [Recovered/Resolved]
  - Hepatic enzyme increased [Unknown]
  - Peripheral swelling [Unknown]
  - Weight increased [Unknown]
  - Fatigue [Recovering/Resolving]
  - Off label use [Unknown]
  - Joint swelling [Unknown]
  - Joint stiffness [Unknown]
  - Dysstasia [Unknown]
  - Weight decreased [Unknown]
  - Rheumatoid arthritis [Recovered/Resolved]
  - Arthralgia [Unknown]

NARRATIVE: CASE EVENT DATE: 2019
